FAERS Safety Report 19248421 (Version 1)
Quarter: 2021Q2

REPORT INFORMATION
  Report Type: Report from Study
  Country: PE (occurrence: PE)
  Receive Date: 20210512
  Receipt Date: 20210512
  Transmission Date: 20210717
  Serious: Yes (Other)
  Sender: FDA-Public Use
  Company Number: NVSC2020PE186264

PATIENT
  Age: 13 Year
  Sex: Male

DRUGS (5)
  1. TASIGNA [Suspect]
     Active Substance: NILOTINIB
     Dosage: 3 (600) (UNITS NOT PROVIDED), ONCE DAILY
     Route: 048
     Dates: start: 20201127
  2. TASIGNA [Suspect]
     Active Substance: NILOTINIB
     Dosage: 200 MG, QD
     Route: 048
     Dates: start: 20200529, end: 20200603
  3. TASIGNA [Suspect]
     Active Substance: NILOTINIB
     Indication: CHRONIC MYELOID LEUKAEMIA
     Dosage: 600 MG, QD
     Route: 048
     Dates: start: 20200528
  4. TASIGNA [Suspect]
     Active Substance: NILOTINIB
     Dosage: 800 MG, QD (2 X 400)
     Route: 048
     Dates: start: 20200604, end: 20200626
  5. TASIGNA [Suspect]
     Active Substance: NILOTINIB
     Dosage: 1 OT, QD
     Route: 065
     Dates: start: 20200707

REACTIONS (7)
  - Underdose [Unknown]
  - Glossodynia [Unknown]
  - Product use issue [Unknown]
  - Haemoglobin decreased [Recovering/Resolving]
  - Platelet count decreased [Not Recovered/Not Resolved]
  - Weight decreased [Recovered/Resolved]
  - Oral herpes [Unknown]

NARRATIVE: CASE EVENT DATE: 20200529
